FAERS Safety Report 16918176 (Version 4)
Quarter: 2021Q1

REPORT INFORMATION
  Report Type: Spontaneous
  Country: ES (occurrence: ES)
  Receive Date: 20191015
  Receipt Date: 20210331
  Transmission Date: 20210419
  Serious: Yes (Hospitalization, Other)
  Sender: FDA-Public Use
  Company Number: ES-ACCORD-157093

PATIENT
  Age: 81 Year
  Sex: Female

DRUGS (11)
  1. SIROLIMUS. [Suspect]
     Active Substance: SIROLIMUS
     Indication: PRODUCT USED FOR UNKNOWN INDICATION
     Dosage: UNK UNK, UNKNOWN FREQ.
     Route: 065
  2. ERTAPENEM SODIUM [Suspect]
     Active Substance: ERTAPENEM SODIUM
     Indication: RENAL GRAFT INFECTION
     Dosage: UNK UNK, UNKNOWN FREQ.
     Route: 065
     Dates: start: 201903
  3. OMEPRAZOLE. [Suspect]
     Active Substance: OMEPRAZOLE
     Indication: PRODUCT USED FOR UNKNOWN INDICATION
     Dosage: UNK UNK, UNKNOWN FREQ.
     Route: 065
  4. TACROLIMUS. [Suspect]
     Active Substance: TACROLIMUS
     Indication: CLOSTRIDIUM DIFFICILE INFECTION
     Dosage: UNK UNK, UNKNOWN FREQ.
     Route: 065
  5. FIDAXOMICIN [Suspect]
     Active Substance: FIDAXOMICIN
     Indication: CLOSTRIDIUM DIFFICILE INFECTION
     Dosage: UNK, UNKNOWN FREQ.
     Route: 065
     Dates: start: 201901
  6. ZINPLAVA [Suspect]
     Active Substance: BEZLOTOXUMAB
     Indication: CLOSTRIDIUM DIFFICILE INFECTION
     Dosage: 700 MG, UNKNOWN FREQ.
     Route: 065
     Dates: start: 20190321
  7. PREDNISONE. [Suspect]
     Active Substance: PREDNISONE
     Indication: PRODUCT USED FOR UNKNOWN INDICATION
     Dosage: UNK UNK, UNKNOWN FREQ.
     Route: 065
  8. ERTAPENEM SODIUM [Suspect]
     Active Substance: ERTAPENEM SODIUM
     Indication: RENAL GRAFT INFECTION
     Dosage: UNK UNK, UNKNOWN FREQ.
     Route: 065
     Dates: start: 20181225, end: 2019
  9. ERTAPENEM. [Suspect]
     Active Substance: ERTAPENEM SODIUM
     Indication: ESCHERICHIA INFECTION
     Dosage: UNK UNK, UNKNOWN FREQ.
     Route: 065
     Dates: end: 2019
  10. ERTAPENEM SODIUM [Suspect]
     Active Substance: ERTAPENEM SODIUM
     Indication: ESCHERICHIA INFECTION
     Dosage: UNK UNK, UNKNOWN FREQ.
     Route: 065
     Dates: start: 201903
  11. VANCOMYCIN [Suspect]
     Active Substance: VANCOMYCIN
     Indication: CLOSTRIDIUM DIFFICILE INFECTION
     Dosage: UNKNOWN FREQ.
     Route: 065
     Dates: start: 20190321

REACTIONS (11)
  - Escherichia infection [Unknown]
  - Adenovirus infection [Unknown]
  - Pyrexia [Unknown]
  - Klebsiella infection [Unknown]
  - Clostridium test positive [Unknown]
  - Clostridium difficile infection [Unknown]
  - Renal graft infection [Unknown]
  - Urinary tract infection pseudomonal [Unknown]
  - Escherichia test positive [Unknown]
  - Avian influenza [Unknown]
  - Drug ineffective [Unknown]

NARRATIVE: CASE EVENT DATE: 20181225
